FAERS Safety Report 17238914 (Version 3)
Quarter: 2020Q1

REPORT INFORMATION
  Report Type: Spontaneous
  Country: US (occurrence: US)
  Receive Date: 20200106
  Receipt Date: 20200212
  Transmission Date: 20200409
  Serious: Yes (Other)
  Sender: FDA-Public Use
  Company Number: US-SA-2020SA000081

PATIENT
  Age: 59 Year
  Sex: Male

DRUGS (1)
  1. TOUJEO [Suspect]
     Active Substance: INSULIN GLARGINE
     Indication: TYPE 2 DIABETES MELLITUS
     Dosage: 120 IU, QD
     Route: 065

REACTIONS (5)
  - Diabetes mellitus inadequate control [Recovered/Resolved]
  - Product quality issue [Recovered/Resolved]
  - Blood glucose fluctuation [Unknown]
  - Glycosylated haemoglobin increased [Unknown]
  - Blood glucose increased [Unknown]
